FAERS Safety Report 20901590 (Version 1)
Quarter: 2022Q2

REPORT INFORMATION
  Report Type: Spontaneous
  Country: IT (occurrence: IT)
  Receive Date: 20220601
  Receipt Date: 20220601
  Transmission Date: 20220721
  Serious: Yes (Hospitalization)
  Sender: FDA-Public Use
  Company Number: None

PATIENT
  Sex: Male

DRUGS (13)
  1. AVIBACTAM SODIUM\CEFTAZIDIME [Suspect]
     Active Substance: AVIBACTAM SODIUM\CEFTAZIDIME
     Indication: Bacterial infection
     Dosage: 2.5 G, QD
     Route: 042
     Dates: start: 20220225, end: 20220309
  2. DEURSIL [Concomitant]
     Active Substance: URSODIOL
     Dosage: UNK
  3. PERIVEN [Concomitant]
     Dosage: UNK
  4. ACETAMINOPHEN [Concomitant]
     Active Substance: ACETAMINOPHEN
     Dosage: UNK
  5. TRANEXAMIC ACID [Concomitant]
     Active Substance: TRANEXAMIC ACID
     Dosage: UNK
  6. PANTOPRAZOLO SANDOZ [Concomitant]
     Dosage: UNK
  7. KONAKION [Concomitant]
     Active Substance: PHYTONADIONE
     Dosage: UNK
  8. RIVOTRIL [Concomitant]
     Active Substance: CLONAZEPAM
     Dosage: UNK
  9. BACLOFEN [Concomitant]
     Active Substance: BACLOFEN
     Dosage: 25 MG
  10. TIROSINT [Concomitant]
     Active Substance: LEVOTHYROXINE SODIUM
     Dosage: UNK
  11. LACTULOSE [Concomitant]
     Active Substance: LACTULOSE
     Dosage: UNK
  12. FUROSEMIDE GALENICA SENESE [Concomitant]
     Dosage: UNK
  13. POTASSIUM CHLORIDE [Concomitant]
     Active Substance: POTASSIUM CHLORIDE
     Dosage: UNK

REACTIONS (3)
  - Melaena [Recovering/Resolving]
  - Rectal haemorrhage [Recovering/Resolving]
  - Off label use [Unknown]

NARRATIVE: CASE EVENT DATE: 20220225
